FAERS Safety Report 4414286-0 (Version None)
Quarter: 2004Q3

REPORT INFORMATION
  Report Type: 
  Country: None (occurrence: None)
  Receive Date: 20040729
  Receipt Date: 20040713
  Transmission Date: 20050211
  Serious: Yes (Hospitalization)
  Sender: FDA-Public Use
  Company Number: 175805

PATIENT
  Age: 56 Year
  Sex: Female
  Weight: 57.1532 kg

DRUGS (9)
  1. AVONEX [Suspect]
     Indication: MULTIPLE SCLEROSIS
     Dosage: 30 MCG QW IM
     Route: 030
     Dates: start: 19970301, end: 20010101
  2. SYNTHROID [Concomitant]
  3. IMITREX [Concomitant]
  4. ZOLOFT [Concomitant]
  5. PROTONIX [Concomitant]
  6. LIORESAL ^NOVARTIS^ [Concomitant]
  7. PROVIGIL [Concomitant]
  8. BENTYL [Concomitant]
  9. ^NULEV^ [Concomitant]

REACTIONS (7)
  - ABDOMINAL PAIN UPPER [None]
  - CARDIAC VALVE DISEASE [None]
  - DRUG EFFECT DECREASED [None]
  - FALL [None]
  - FATIGUE [None]
  - LOWER LIMB FRACTURE [None]
  - MULTIPLE SCLEROSIS RELAPSE [None]
